FAERS Safety Report 10310384 (Version 2)
Quarter: 2014Q3

REPORT INFORMATION
  Report Type: Spontaneous
  Country: US (occurrence: None)
  Receive Date: 20140715
  Receipt Date: 20140912
  Transmission Date: 20150326
  Serious: Yes (Death, Other)
  Sender: FDA-Public Use
  Company Number: 2429137

PATIENT
  Age: 53 Year
  Sex: Female
  Weight: 78.02 kg

DRUGS (6)
  1. KETOROLAC TROMETHAMINE INJECTION, USP (KETOROLAC TROMETAMOL) [Suspect]
     Active Substance: KETOROLAC TROMETHAMINE
     Dosage: 60 MG MILLIGRAM(S), UNKNOWN, INTRAMUSCULAR
     Route: 030
     Dates: start: 20140523, end: 20140523
  2. PROMETHAZINE [Suspect]
     Active Substance: PROMETHAZINE\PROMETHAZINE HYDROCHLORIDE
     Dosage: 50 MG MILLIGRAM(S), UNKNOWN, INTRAMUSCULAR
     Route: 030
     Dates: start: 20140523, end: 20140523
  3. PROMETHAZINE [Suspect]
     Active Substance: PROMETHAZINE\PROMETHAZINE HYDROCHLORIDE
     Indication: PAIN
     Dosage: 50 MG MILLIGRAM(S), UNKNOWN, INTRAMUSCULAR
     Route: 030
     Dates: start: 20140523, end: 20140523
  4. TRAMADOL [Concomitant]
     Active Substance: TRAMADOL
  5. KETOROLAC TROMETHAMINE INJECTION, USP (KETOROLAC TROMETAMOL) [Suspect]
     Active Substance: KETOROLAC TROMETHAMINE
     Indication: VOMITING
     Dosage: 60 MG MILLIGRAM(S), UNKNOWN, INTRAMUSCULAR
     Route: 030
     Dates: start: 20140523, end: 20140523
  6. IMITREX [Suspect]
     Active Substance: SUMATRIPTAN\SUMATRIPTAN SUCCINATE
     Dosage: 100 MG MILLIGRAM(S),1 DAY
     Dates: start: 20140523, end: 201405

REACTIONS (9)
  - Gastrointestinal haemorrhage [None]
  - Renal failure [None]
  - Sepsis [None]
  - Multi-organ failure [None]
  - Urinary tract infection [None]
  - Diabetes mellitus inadequate control [None]
  - Gastric ulcer [None]
  - Disseminated intravascular coagulation [None]
  - Blood glucose increased [None]
